FAERS Safety Report 8493580-0 (Version None)
Quarter: 2012Q3

REPORT INFORMATION
  Report Type: 
  Country: None (occurrence: None)
  Receive Date: 20120706
  Receipt Date: 20120627
  Transmission Date: 20120928
  Serious: Yes (Other)
  Sender: FDA-Public Use
  Company Number: JP-ASTRAZENECA-2012SE39043

PATIENT
  Age: 80 Year
  Sex: Male

DRUGS (3)
  1. LH-RH [Concomitant]
     Route: 065
  2. CASODEX [Suspect]
     Indication: PROSTATE CANCER
     Route: 048
  3. LEUPROLIDE ACETATE [Suspect]
     Indication: PROSTATE CANCER
     Route: 065

REACTIONS (1)
  - GLUCOSE TOLERANCE IMPAIRED [None]
